FAERS Safety Report 6371663-9 (Version None)
Quarter: 2009Q3

REPORT INFORMATION
  Report Type: 
  Country: None (occurrence: None)
  Receive Date: 20090923
  Receipt Date: 20080731
  Transmission Date: 20100115
  Serious: Yes (Other)
  Sender: FDA-Public Use
  Company Number: US-ASTRAZENECA-2008UW12146

PATIENT
  Age: 35 Year
  Sex: Male

DRUGS (5)
  1. SEROQUEL [Suspect]
     Indication: BIPOLAR DISORDER
     Route: 048
     Dates: start: 20080206, end: 20080406
  2. SEROQUEL [Suspect]
     Route: 048
  3. DIOVAN [Concomitant]
     Indication: BLOOD PRESSURE
     Dosage: 320/125
     Dates: start: 20071217
  4. LOTREL [Concomitant]
     Dosage: 10/20
     Dates: start: 20080109
  5. OMEPRAZOLE [Concomitant]
     Dosage: 20 PO EVERYDAY
     Dates: start: 20080306

REACTIONS (1)
  - PRIAPISM [None]
